FAERS Safety Report 8619638-0 (Version None)
Quarter: 2012Q3

REPORT INFORMATION
  Report Type: 
  Country: None (occurrence: None)
  Receive Date: 20120824
  Receipt Date: 20120821
  Transmission Date: 20120928
  Serious: Yes (Hospitalization)
  Sender: FDA-Public Use
  Company Number: GR-BAYER-2012-087517

PATIENT
  Age: 71 Year
  Sex: Female

DRUGS (4)
  1. STATIN MEDICATION [Concomitant]
     Indication: HYPERLIPIDAEMIA
  2. ANAESTHETICS, LOCAL [Concomitant]
  3. ULTRAVIST 150 [Suspect]
     Indication: ARTERIOGRAM CAROTID
     Dosage: 25 ML, UNK
  4. ACE INHIBITOR NOS [Concomitant]
     Indication: HYPERTENSION

REACTIONS (1)
  - ENCEPHALOPATHY [None]
